FAERS Safety Report 19319752 (Version 1)
Quarter: 2021Q2

REPORT INFORMATION
  Report Type: Spontaneous
  Country: US (occurrence: US)
  Receive Date: 20210527
  Receipt Date: 20210527
  Transmission Date: 20210717
  Serious: Yes (Other)
  Sender: FDA-Public Use
  Company Number: None

PATIENT
  Age: 68 Year
  Sex: Female
  Weight: 54.43 kg

DRUGS (1)
  1. TRAVOPROST, 004% [Suspect]
     Active Substance: TRAVOPROST
     Indication: NORMAL TENSION GLAUCOMA
     Dosage: ?          OTHER ROUTE:DROP?
     Dates: start: 20201001, end: 20210511

REACTIONS (6)
  - Eye irritation [None]
  - Product formulation issue [None]
  - Ocular hyperaemia [None]
  - Product substitution issue [None]
  - Application site erythema [None]
  - Application site irritation [None]

NARRATIVE: CASE EVENT DATE: 20210511
